FAERS Safety Report 5589927-5 (Version None)
Quarter: 2008Q1

REPORT INFORMATION
  Report Type: 
  Country: None (occurrence: None)
  Receive Date: 20080114
  Receipt Date: 20071231
  Transmission Date: 20080703
  Serious: Yes (Death)
  Sender: FDA-Public Use
  Company Number: US-JNJFOC-20080101071

PATIENT
  Age: 71 Year
  Sex: Female

DRUGS (8)
  1. FAMOTIDINE [Suspect]
     Route: 048
  2. FAMOTIDINE [Suspect]
     Indication: DRUG USE FOR UNKNOWN INDICATION
     Route: 048
  3. CARDIAC GLYCOSIDE [Suspect]
     Indication: DRUG USE FOR UNKNOWN INDICATION
     Route: 048
  4. CLONIDINE [Suspect]
     Indication: DRUG USE FOR UNKNOWN INDICATION
     Route: 048
  5. CALCIUM ANTAGONIST [Suspect]
     Indication: DRUG USE FOR UNKNOWN INDICATION
     Route: 048
  6. LISINOPRIL [Suspect]
     Indication: DRUG USE FOR UNKNOWN INDICATION
     Route: 048
  7. ATORVASTATIN [Suspect]
     Indication: DRUG USE FOR UNKNOWN INDICATION
     Route: 048
  8. CARVEDILOL [Suspect]
     Indication: DRUG USE FOR UNKNOWN INDICATION
     Route: 048

REACTIONS (2)
  - DRUG TOXICITY [None]
  - MULTIPLE DRUG OVERDOSE [None]
